FAERS Safety Report 7228903-3 (Version None)
Quarter: 2011Q1

REPORT INFORMATION
  Report Type: 
  Country: None (occurrence: None)
  Receive Date: 20110117
  Receipt Date: 20110105
  Transmission Date: 20110831
  Serious: Yes (Hospitalization)
  Sender: FDA-Public Use
  Company Number: US-ELI_LILLY_AND_COMPANY-US201003007594

PATIENT
  Sex: Female

DRUGS (6)
  1. BENAZEPRIL HYDROCHLORIDE [Concomitant]
  2. SYNTHROID [Concomitant]
  3. FORTEO [Suspect]
     Indication: OSTEOPOROSIS
     Dosage: 20 UG, DAILY (1/D)
  4. CALCIUM W/VITAMIN D NOS [Concomitant]
  5. ASPIRIN [Concomitant]
     Dosage: 81 MG, UNK
  6. FORTEO [Suspect]
     Dosage: 20 UG, DAILY (1/D)
     Dates: start: 20100315

REACTIONS (5)
  - ARTHRITIS [None]
  - DRUG DOSE OMISSION [None]
  - ARTHRALGIA [None]
  - CONSTIPATION [None]
  - MUSCLE SPASMS [None]
